FAERS Safety Report 10015331 (Version 4)
Quarter: 2014Q2

REPORT INFORMATION
  Report Type: Report from Study
  Country: CA (occurrence: CA)
  Receive Date: 20140317
  Receipt Date: 20140626
  Transmission Date: 20141212
  Serious: Yes (Other)
  Sender: FDA-Public Use
  Company Number: CA-ABBVIE-14P-028-1210977-00

PATIENT
  Sex: Female
  Weight: 72.64 kg

DRUGS (4)
  1. HUMIRA [Suspect]
     Indication: PSORIASIS
     Route: 058
     Dates: start: 20090121, end: 20140222
  2. PAXIL [Concomitant]
     Indication: DEPRESSION
     Route: 048
     Dates: start: 2010
  3. RABEPRAZOLE [Concomitant]
     Indication: GASTROOESOPHAGEAL REFLUX DISEASE
     Route: 048
     Dates: start: 2011
  4. CELEBREX [Concomitant]
     Indication: ARTHRITIS
     Route: 048

REACTIONS (6)
  - Uterine prolapse [Recovered/Resolved]
  - Uterine malposition [Recovered/Resolved]
  - Urinary incontinence [Recovered/Resolved]
  - Infection [Recovered/Resolved]
  - Infection [Recovered/Resolved]
  - Infection [Recovered/Resolved with Sequelae]
